FAERS Safety Report 5890716-2 (Version None)
Quarter: 2008Q3

REPORT INFORMATION
  Report Type: 
  Country: None (occurrence: None)
  Receive Date: 20080918
  Receipt Date: 20080604
  Transmission Date: 20090109
  Serious: Yes (Other)
  Sender: FDA-Public Use
  Company Number: POMP-1000284

PATIENT
  Age: 10 Year
  Sex: Male

DRUGS (10)
  1. MYOZYME [Suspect]
     Indication: GLYCOGEN STORAGE DISEASE TYPE II
     Dosage: 300 MG, Q2W, INTRAVENOUS
     Route: 042
     Dates: start: 20070824
  2. ENALAPRIL MALEATE [Concomitant]
  3. ANTIBIOTICS-RESISTANT LACTIC ACID BACTERIAE (ANTIBIOTICS-RESISTANT LAC [Concomitant]
  4. FUROSEMIDE [Concomitant]
  5. ASPIRIN [Concomitant]
  6. CARVEDILOL [Concomitant]
  7. BUMETANIDE [Concomitant]
  8. SODIUM PICOSULFATE (SODIUM PICOSULFATE) [Concomitant]
  9. HYDROCORTISONE SODIUM SUCCINATE [Concomitant]
  10. HYDROXYZINE HCL [Concomitant]

REACTIONS (4)
  - LIP SWELLING [None]
  - PRURITUS [None]
  - RASH [None]
  - WHEEZING [None]
